FAERS Safety Report 8769651 (Version 1)
Quarter: 2012Q4

REPORT INFORMATION
  Report Type: 
  Country: BR (occurrence: BR)
  Receive Date: 20120905
  Receipt Date: 20120905
  Transmission Date: 20130627
  Serious: Yes (Other)
  Sender: FDA-Public Use
  Company Number: BR-AMGEN-BRASP2012055405

PATIENT
  Age: 65 Year
  Sex: Male
  Weight: 96 kg

DRUGS (3)
  1. MIMPARA [Suspect]
     Indication: HYPERPARATHYROIDISM
     Dosage: 30 mg, qd
     Route: 048
     Dates: start: 20120705, end: 20120729
  2. RENAGEL                            /01459901/ [Concomitant]
     Indication: BLOOD PHOSPHORUS INCREASED
     Dosage: UNK UNK, qd
     Route: 048
     Dates: start: 2011, end: 20120729
  3. LIPITOR [Concomitant]
     Indication: BLOOD CHOLESTEROL INCREASED
     Dosage: UNK
     Route: 048
     Dates: start: 2008, end: 20120729

REACTIONS (1)
  - Transplant [Recovered/Resolved]
